FAERS Safety Report 5869112-X (Version None)
Quarter: 2008Q3

REPORT INFORMATION
  Report Type: 
  Country: None (occurrence: None)
  Receive Date: 20080828
  Receipt Date: 20080813
  Transmission Date: 20090109
  Serious: Yes (Other)
  Sender: FDA-Public Use
  Company Number: 2008AL006382

PATIENT
  Sex: Male

DRUGS (1)
  1. DIGOXIN [Suspect]
     Indication: CARDIAC DISORDER
     Dosage: DAILY, PO
     Route: 048

REACTIONS (2)
  - CARDIOACTIVE DRUG LEVEL INCREASED [None]
  - DYSPNOEA [None]
